FAERS Safety Report 20023026 (Version 3)
Quarter: 2021Q4

REPORT INFORMATION
  Report Type: Spontaneous
  Country: GB (occurrence: GB)
  Receive Date: 20211102
  Receipt Date: 20211119
  Transmission Date: 20220303
  Serious: Yes (Death, Other)
  Sender: FDA-Public Use
  Company Number: GB-NOVARTISPH-NVSC2021GB247656

PATIENT
  Age: 88 Year
  Sex: Male
  Weight: 92 kg

DRUGS (14)
  1. OMEPRAZOLE [Suspect]
     Active Substance: OMEPRAZOLE
     Indication: Product used for unknown indication
     Dosage: 10 MG, QD (350 MILLIGRAMS)
     Route: 048
     Dates: start: 20210910, end: 20211015
  2. ACETAMINOPHEN [Suspect]
     Active Substance: ACETAMINOPHEN
     Indication: Product used for unknown indication
     Dosage: 8 DF, QD
     Route: 065
     Dates: start: 20210122
  3. TAMSULOSIN HYDROCHLORIDE [Suspect]
     Active Substance: TAMSULOSIN HYDROCHLORIDE
     Indication: Product used for unknown indication
     Dosage: 1 DF, QD
     Route: 065
     Dates: start: 20210219
  4. RAMIPRIL [Suspect]
     Active Substance: RAMIPRIL
     Indication: Blood pressure measurement
     Dosage: 1 DF, QD
     Route: 065
     Dates: start: 20201015
  5. CALCIUM CARBONATE\SODIUM ALGINATE\SODIUM BICARBONATE [Suspect]
     Active Substance: CALCIUM CARBONATE\SODIUM ALGINATE\SODIUM BICARBONATE
     Indication: Product used for unknown indication
     Dosage: 40 ML, QD
     Route: 065
     Dates: start: 20210910
  6. CHOLECALCIFEROL [Suspect]
     Active Substance: CHOLECALCIFEROL
     Indication: Product used for unknown indication
     Dosage: UNK, TO BE TAKEN EACH MORNING; ;
     Route: 065
     Dates: start: 20210122
  7. DABIGATRAN ETEXILATE [Suspect]
     Active Substance: DABIGATRAN ETEXILATE
     Indication: Blood disorder
     Dosage: 1 DF, BID,
     Route: 065
     Dates: start: 20211015
  8. DABIGATRAN ETEXILATE [Suspect]
     Active Substance: DABIGATRAN ETEXILATE
     Indication: Anticoagulant therapy
  9. DILTIAZEM [Suspect]
     Active Substance: DILTIAZEM
     Indication: Product used for unknown indication
     Dosage: 1 DF, QD IN THE MORNING;
     Route: 065
     Dates: start: 20201109
  10. ISOPROPYL MYRISTATE\PARAFFIN [Suspect]
     Active Substance: ISOPROPYL MYRISTATE\PARAFFIN
     Indication: Product used for unknown indication
     Dosage: 1 DF, QD, APPLY
     Route: 065
     Dates: start: 20200326
  11. FLUOROURACIL [Suspect]
     Active Substance: FLUOROURACIL
     Indication: Product used for unknown indication
     Dosage: 1DF, QD,APPLY ONCE TO TWICE DAILY FOR 3-4 WEEKS
     Route: 065
     Dates: start: 20211001
  12. NITROGLYCERIN [Suspect]
     Active Substance: NITROGLYCERIN
     Indication: Product used for unknown indication
     Dosage: 1 DF, PUFF; ;
     Route: 065
     Dates: start: 20200326
  13. HYDROCORTISONE [Suspect]
     Active Substance: HYDROCORTISONE
     Indication: Product used for unknown indication
     Dosage: 1 DF, BID, APPLY SPARINGLY TO THE AFFECTED AREA
     Route: 065
     Dates: start: 20211001
  14. ACETAMINOPHEN\BENZALKONIUM\DICHLORALPHENAZONE\DIMETHICONE\HYDROCORTISO [Suspect]
     Active Substance: ACETAMINOPHEN\BENZALKONIUM\DICHLORALPHENAZONE\DIMETHICONE\HYDROCORTISONE\ISOMETHEPTENE\NYSTATIN
     Indication: Skin lesion
     Dosage: 3 DF, QD; APPLY UNTIL THE LESIONS HAVE HEALED,
     Route: 065
     Dates: start: 20210910, end: 20210924

REACTIONS (1)
  - Erythema multiforme [Fatal]

NARRATIVE: CASE EVENT DATE: 20211015
